FAERS Safety Report 25023379 (Version 1)
Quarter: 2025Q1

REPORT INFORMATION
  Report Type: Spontaneous
  Country: JP (occurrence: JP)
  Receive Date: 20250228
  Receipt Date: 20250228
  Transmission Date: 20250408
  Serious: Yes (Death, Hospitalization, Other)
  Sender: MERCK SHARP & DOHME LLC
  Company Number: JP-009507513-2258500

PATIENT
  Age: 82 Year
  Sex: Female
  Weight: 46 kg

DRUGS (13)
  1. KEYTRUDA [Suspect]
     Active Substance: PEMBROLIZUMAB
     Indication: Renal cell carcinoma stage III
     Route: 041
     Dates: start: 20240701, end: 20240722
  2. DIOVAN [Concomitant]
     Active Substance: VALSARTAN
  3. DIOVAN [Concomitant]
     Active Substance: VALSARTAN
  4. PRAVASTATIN SODIUM [Concomitant]
     Active Substance: PRAVASTATIN SODIUM
  5. CALONAL [Concomitant]
     Active Substance: ACETAMINOPHEN
  6. BIO-THREE [Concomitant]
     Active Substance: HERBALS
  7. NEXIUM [Concomitant]
     Active Substance: ESOMEPRAZOLE MAGNESIUM
  8. REBAMIPIDE [Concomitant]
     Active Substance: REBAMIPIDE
  9. ELDECALCITOL [Concomitant]
     Active Substance: ELDECALCITOL
  10. BENIDIPINE HYDROCHLORIDE [Concomitant]
     Active Substance: BENIDIPINE HYDROCHLORIDE
  11. ALESION [Concomitant]
     Active Substance: EPINASTINE HYDROCHLORIDE
  12. LOPEMIN [Concomitant]
  13. LOXOPROFEN SODIUM [Concomitant]
     Active Substance: LOXOPROFEN SODIUM

REACTIONS (4)
  - Immune-mediated hepatitis [Fatal]
  - Cholestasis [Not Recovered/Not Resolved]
  - Colitis ischaemic [Not Recovered/Not Resolved]
  - Cholecystitis [Not Recovered/Not Resolved]

NARRATIVE: CASE EVENT DATE: 20240812
